FAERS Safety Report 19222055 (Version 1)
Quarter: 2021Q2

REPORT INFORMATION
  Report Type: Spontaneous
  Country: US (occurrence: US)
  Receive Date: 20210505
  Receipt Date: 20210505
  Transmission Date: 20210717
  Serious: Yes (Hospitalization)
  Sender: FDA-Public Use
  Company Number: None

PATIENT
  Sex: Female

DRUGS (9)
  1. VENTOLIN HFA [Concomitant]
     Active Substance: ALBUTEROL SULFATE
  2. DULERA [Concomitant]
     Active Substance: FORMOTEROL FUMARATE DIHYDRATE\MOMETASONE FUROATE
  3. NUCALA [Suspect]
     Active Substance: MEPOLIZUMAB
     Indication: ASTHMA
     Dosage: ?          OTHER FREQUENCY:Q28D;?
     Route: 058
     Dates: start: 20200724
  4. AMITRIPTYLIN [Concomitant]
     Active Substance: AMITRIPTYLINE
  5. METOPROL TAR [Concomitant]
  6. ALBUTEROL HFA [Concomitant]
     Active Substance: ALBUTEROL SULFATE
  7. IPRATROPIUM/SOL ALBUTER [Concomitant]
  8. TRIAM/HCTZ [Concomitant]
     Active Substance: HYDROCHLOROTHIAZIDE\TRIAMTERENE
  9. SPIRIVA [Concomitant]
     Active Substance: TIOTROPIUM BROMIDE MONOHYDRATE

REACTIONS (3)
  - Asthma [None]
  - Headache [None]
  - Fatigue [None]
